FAERS Safety Report 7418142-5 (Version None)
Quarter: 2011Q2

REPORT INFORMATION
  Report Type: 
  Country: None (occurrence: None)
  Receive Date: 20110415
  Receipt Date: 20110404
  Transmission Date: 20111010
  Serious: Yes (Hospitalization)
  Sender: FDA-Public Use
  Company Number: JP-BAYER-2011-003700

PATIENT
  Age: 67 Year
  Sex: Female
  Weight: 62 kg

DRUGS (15)
  1. LACTEC [Concomitant]
     Indication: DECREASED APPETITE
     Dosage: 500 ML, QD
     Route: 042
     Dates: start: 20101019, end: 20101019
  2. LACTEC [Concomitant]
     Indication: MALAISE
  3. JUZENTAIHOTO [Concomitant]
     Indication: DECREASED APPETITE
     Dosage: 2.5 MG, TID
     Route: 048
     Dates: start: 20101211
  4. NEXAVAR [Suspect]
     Dosage: 400 MG, QD
     Route: 048
     Dates: start: 20101109, end: 20101220
  5. ANTINEOPLASTIC AGENTS [Suspect]
     Indication: HEPATIC NEOPLASM MALIGNANT
  6. BIOFERMIN [Concomitant]
     Indication: DIARRHOEA
     Dosage: 1 DF, TID
     Route: 048
     Dates: start: 20101010, end: 20101012
  7. SOLITA-T1 [Concomitant]
     Indication: DECREASED APPETITE
     Dosage: 500 ML, QD
     Route: 042
     Dates: start: 20101012, end: 20101012
  8. LOPERAMIDE HYDROCHLORIDE [Concomitant]
     Indication: DIARRHOEA
     Dosage: 1 MG, BID
     Route: 048
     Dates: start: 20101012
  9. LOXONIN [Concomitant]
     Indication: PYREXIA
     Dosage: 60 MG, PRN
     Route: 065
     Dates: start: 20100921, end: 20100921
  10. SPIRONOLACTONE [Concomitant]
     Indication: ASCITES
     Dosage: 50 MG, BID
     Route: 048
     Dates: start: 20101129
  11. NEXAVAR [Suspect]
     Indication: HEPATIC NEOPLASM MALIGNANT
     Dosage: 400 MG, BID
     Route: 048
     Dates: start: 20100928, end: 20101101
  12. UREA [Concomitant]
     Indication: PROPHYLAXIS
     Dosage: UNK
     Route: 061
     Dates: start: 20100928
  13. DEXTROMETHORPHAN HYDROBROMIDE [Concomitant]
     Indication: COUGH
     Dosage: 15 MG, TID
     Route: 048
     Dates: start: 20101005, end: 20101009
  14. LACTOBACILLUS BIFIDUS, LYOPHILIZED [Concomitant]
     Indication: DIARRHOEA
     Dosage: 1 MG, TID
     Route: 048
     Dates: start: 20101012
  15. ENSURE [MINERALS NOS,VITAMINS NOS] [Concomitant]
     Indication: DECREASED APPETITE
     Dosage: 250 ML, PRN
     Route: 048
     Dates: start: 20101130

REACTIONS (2)
  - OEDEMA PERIPHERAL [None]
  - ASCITES [None]
